FAERS Safety Report 25912773 (Version 1)
Quarter: 2025Q4

REPORT INFORMATION
  Report Type: Report from Study
  Country: CA (occurrence: CA)
  Receive Date: 20251013
  Receipt Date: 20251013
  Transmission Date: 20260117
  Serious: Yes (Other)
  Sender: AMGEN
  Company Number: CA-AMGEN-CANSL2024180038

PATIENT
  Age: 72 Year
  Sex: Female
  Weight: 52 kg

DRUGS (12)
  1. MVASI [Suspect]
     Active Substance: BEVACIZUMAB-AWWB
     Indication: Colorectal cancer metastatic
     Dosage: 5 MILLIGRAM/KILOGRAM, Q2WK
     Route: 040
     Dates: start: 20241010
  2. MVASI [Suspect]
     Active Substance: BEVACIZUMAB-AWWB
     Dosage: 250 MILLIGRAM, Q2WK
     Route: 040
     Dates: start: 20241024
  3. MVASI [Suspect]
     Active Substance: BEVACIZUMAB-AWWB
     Dosage: 250 MILLIGRAM, Q2WK
     Route: 040
     Dates: start: 20241107
  4. MVASI [Suspect]
     Active Substance: BEVACIZUMAB-AWWB
     Dosage: 250 MILLIGRAM, Q2WK
     Route: 040
     Dates: start: 20241205
  5. MVASI [Suspect]
     Active Substance: BEVACIZUMAB-AWWB
     Dosage: 250 MILLIGRAM, Q2WK
     Route: 040
     Dates: start: 20250102
  6. MVASI [Suspect]
     Active Substance: BEVACIZUMAB-AWWB
     Dosage: 250 MILLIGRAM, Q2WK
     Route: 040
  7. MVASI [Suspect]
     Active Substance: BEVACIZUMAB-AWWB
     Dosage: 260 MILLIGRAM, Q2WK
     Route: 040
  8. MVASI [Suspect]
     Active Substance: BEVACIZUMAB-AWWB
     Dosage: 250 MILLIGRAM, Q2WK
     Route: 040
     Dates: end: 20250403
  9. MVASI [Suspect]
     Active Substance: BEVACIZUMAB-AWWB
     Dosage: 250 MILLIGRAM, Q2WK
     Route: 040
  10. MVASI [Suspect]
     Active Substance: BEVACIZUMAB-AWWB
     Dosage: 260 MILLIGRAM, Q2WK
     Route: 040
  11. MVASI [Suspect]
     Active Substance: BEVACIZUMAB-AWWB
     Dosage: 5 MILLIGRAM/KILOGRAM, Q2WK
     Route: 040
  12. LONSURF [Concomitant]
     Active Substance: TIPIRACIL HYDROCHLORIDE\TRIFLURIDINE
     Dosage: UNK TABLET
     Route: 065

REACTIONS (13)
  - Musculoskeletal chest pain [Recovering/Resolving]
  - Decreased appetite [Recovering/Resolving]
  - White blood cell count decreased [Recovering/Resolving]
  - Neutropenia [Recovering/Resolving]
  - Dysgeusia [Recovering/Resolving]
  - Fatigue [Recovering/Resolving]
  - Diarrhoea [Recovering/Resolving]
  - Hypertension [Recovering/Resolving]
  - Nausea [Recovering/Resolving]
  - Blood test abnormal [Recovering/Resolving]
  - Off label use [Recovering/Resolving]
  - Incorrect dose administered [Recovering/Resolving]
  - Ill-defined disorder [Recovering/Resolving]

NARRATIVE: CASE EVENT DATE: 20241001
